FAERS Safety Report 18076587 (Version 1)
Quarter: 2020Q3

REPORT INFORMATION
  Report Type: Spontaneous
  Country: FR (occurrence: FR)
  Receive Date: 20200728
  Receipt Date: 20200728
  Transmission Date: 20201103
  Serious: Yes (Hospitalization)
  Sender: FDA-Public Use
  Company Number: FR-TEVA-2020-FR-1805052

PATIENT
  Age: 61 Year
  Sex: Male
  Weight: 85 kg

DRUGS (4)
  1. FLUOROURACILE PFIZER 50 MG/ML, SOLUTION A DILUER POUR PERFUSION [Suspect]
     Active Substance: FLUOROURACIL
     Indication: PANCREATIC NEUROENDOCRINE TUMOUR METASTATIC
     Dosage: 5000 MG
     Route: 041
     Dates: start: 20200526, end: 20200528
  2. FOLINATE DE CALCIUM ZENTIVA [Concomitant]
     Active Substance: LEUCOVORIN CALCIUM
     Indication: PANCREATIC NEUROENDOCRINE TUMOUR METASTATIC
     Dosage: 40 MG
     Route: 041
     Dates: start: 20200526, end: 20200526
  3. OXYCODONE (CHLORHYDRATE D^) [Concomitant]
     Route: 048
  4. IRINOTECAN (CHLORHYDRATE D^) TRIHYDRATE [Suspect]
     Active Substance: IRINOTECAN HYDROCHLORIDE
     Indication: PANCREATIC NEUROENDOCRINE TUMOUR METASTATIC
     Dosage: 400 MG
     Route: 041
     Dates: start: 20200526, end: 20200526

REACTIONS (4)
  - Pancytopenia [Recovered/Resolved]
  - Diarrhoea [Recovered/Resolved]
  - Colitis [Recovered/Resolved]
  - Dehydration [Recovered/Resolved]

NARRATIVE: CASE EVENT DATE: 20200601
